FAERS Safety Report 5023479-3 (Version None)
Quarter: 2006Q2

REPORT INFORMATION
  Report Type: 
  Country: None (occurrence: None)
  Receive Date: 20060612
  Receipt Date: 20001205
  Transmission Date: 20061013
  Serious: Yes (Hospitalization)
  Sender: FDA-Public Use
  Company Number: JP-MERCK-00120555

PATIENT
  Age: 57 Year
  Sex: Female

DRUGS (4)
  1. PEPCID [Suspect]
     Route: 048
     Dates: start: 19970401
  2. METHOTREXATE [Suspect]
     Indication: RHEUMATOID ARTHRITIS
     Route: 048
     Dates: start: 19970401
  3. PREDNISONE [Concomitant]
     Route: 048
     Dates: start: 19970401
  4. SULINDAC(WEST POINT PHARMA) [Concomitant]
     Route: 065
     Dates: start: 19970401

REACTIONS (1)
  - ANAEMIA HAEMOLYTIC AUTOIMMUNE [None]
